FAERS Safety Report 22823264 (Version 2)
Quarter: 2023Q4

REPORT INFORMATION
  Report Type: Spontaneous
  Country: US (occurrence: US)
  Receive Date: 20230815
  Receipt Date: 20231125
  Transmission Date: 20240109
  Serious: Yes (Hospitalization, Other)
  Sender: FDA-Public Use
  Company Number: US-BRISTOL-MYERS SQUIBB COMPANY-2023-112975

PATIENT
  Age: 47 Year
  Sex: Male

DRUGS (1)
  1. BREYANZI [Suspect]
     Active Substance: LISOCABTAGENE MARALEUCEL
     Indication: Product used for unknown indication
     Route: 042
     Dates: start: 20230515

REACTIONS (11)
  - Fatigue [Recovering/Resolving]
  - Pyrexia [Recovering/Resolving]
  - Cytokine release syndrome [Recovering/Resolving]
  - Neurotoxicity [Recovering/Resolving]
  - Asthenia [Recovering/Resolving]
  - Decreased appetite [Recovering/Resolving]
  - Sensitive skin [Recovering/Resolving]
  - Diarrhoea [Recovering/Resolving]
  - Renal pain [Recovering/Resolving]
  - Arthralgia [Recovering/Resolving]
  - Pain in jaw [Recovering/Resolving]

NARRATIVE: CASE EVENT DATE: 20230101
